FAERS Safety Report 7570653-8 (Version None)
Quarter: 2011Q2

REPORT INFORMATION
  Report Type: 
  Country: None (occurrence: None)
  Receive Date: 20110624
  Receipt Date: 20110425
  Transmission Date: 20111010
  Serious: No
  Sender: FDA-Public Use
  Company Number: US-ALLERGAN-1105731US

PATIENT
  Sex: Female

DRUGS (3)
  1. MASCARA [Concomitant]
  2. LATISSE [Suspect]
     Indication: EYELASH DISCOLOURATION
  3. LATISSE [Suspect]
     Indication: GROWTH OF EYELASHES
     Dosage: 1 GTT, QHS
     Route: 061
     Dates: start: 20110101

REACTIONS (2)
  - EYE PRURITUS [None]
  - DRUG INEFFECTIVE [None]
